FAERS Safety Report 4996515-8 (Version None)
Quarter: 2006Q2

REPORT INFORMATION
  Report Type: 
  Country: None (occurrence: None)
  Receive Date: 20060505
  Receipt Date: 20060505
  Transmission Date: 20061013
  Serious: Yes (Death, Hospitalization)
  Sender: FDA-Public Use
  Company Number: 2006000763

PATIENT
  Age: 46 Year
  Sex: Male

DRUGS (5)
  1. TARCEVA [Suspect]
     Indication: PANCREATIC CARCINOMA
     Dosage: 100 MG (QD), ORAL
     Route: 048
     Dates: start: 20060301, end: 20060330
  2. GEMZAR [Concomitant]
  3. XELODA [Concomitant]
  4. OXYCONTIN [Concomitant]
  5. ANTIEMETIC [Concomitant]

REACTIONS (23)
  - ANXIETY [None]
  - ASTHENIA [None]
  - BALANCE DISORDER [None]
  - CONDUCTION DISORDER [None]
  - DEPRESSION [None]
  - DILATATION VENTRICULAR [None]
  - DIZZINESS [None]
  - DYSPNOEA [None]
  - ELECTROCARDIOGRAM POOR R-WAVE PROGRESSION [None]
  - ELECTROCARDIOGRAM Q WAVE ABNORMAL [None]
  - ELECTROCARDIOGRAM T WAVE INVERSION [None]
  - HAEMOGLOBIN DECREASED [None]
  - HYPERHIDROSIS [None]
  - MUSCULOSKELETAL CHEST PAIN [None]
  - NAUSEA [None]
  - PAIN IN EXTREMITY [None]
  - PLEURAL RUB [None]
  - PLEURITIC PAIN [None]
  - PULMONARY EMBOLISM [None]
  - PYREXIA [None]
  - SINUS TACHYCARDIA [None]
  - TROPONIN INCREASED [None]
  - WEIGHT DECREASED [None]
